FAERS Safety Report 8209474-1 (Version None)
Quarter: 2012Q1

REPORT INFORMATION
  Report Type: 
  Country: None (occurrence: None)
  Receive Date: 20120314
  Receipt Date: 20120229
  Transmission Date: 20120608
  Serious: Yes (Other)
  Sender: FDA-Public Use
  Company Number: CHPA2012US004223

PATIENT
  Sex: Female

DRUGS (1)
  1. BENEFIBER PLUS CALCIUM WITH WHEAT DEXTRIN [Suspect]
     Indication: NUTRITIONAL SUPPORT
     Dosage: UNK, UNK
     Route: 048
     Dates: start: 20120201, end: 20120201

REACTIONS (5)
  - PRURITUS [None]
  - ACNE [None]
  - HYPERSENSITIVITY [None]
  - RASH [None]
  - INSOMNIA [None]
